FAERS Safety Report 7625520-8 (Version None)
Quarter: 2011Q3

REPORT INFORMATION
  Report Type: 
  Country: None (occurrence: None)
  Receive Date: 20110713
  Receipt Date: 20110629
  Transmission Date: 20111222
  Serious: Yes (Hospitalization)
  Sender: FDA-Public Use
  Company Number: DSJ-2011-00404

PATIENT
  Age: 73 Year
  Sex: Male
  Weight: 64 kg

DRUGS (7)
  1. MYORELARK (EPERIDONE HYDROCHLORIDE) (EPERISONE HYDROCHLORIDE) [Concomitant]
     Dosage: DOSE 150
     Dates: end: 20110118
  2. REZALTAS (OLMESARTAN MEDOXOMIL/AZELNIDIPINE) (TABLET) [Suspect]
     Indication: ESSENTIAL HYPERTENSION
     Dosage: 20MG/16MG, PER ORAL
     Route: 048
     Dates: start: 20100717, end: 20110118
  3. LOXOMARIN (LOXOPROFEN SODIUM) (LOXOPROFEN SODIUM) [Suspect]
     Dosage: 180 MG
     Dates: end: 20110118
  4. NORVASC [Concomitant]
  5. OLMESARTAN MEDOXOMIL [Suspect]
     Indication: ESSENTIAL HYPERTENSION
  6. LACMARZE (CETRAXATE HYDROCHLORIDE) (CAPSULE) (CETRAXATE HYDROCHLORIDE) [Suspect]
     Dosage: 600 MG
     Dates: end: 20110118
  7. CYANOCOBALAMIN [Suspect]
     Dosage: 1.5 MG
     Dates: end: 20110108

REACTIONS (2)
  - DISEASE RECURRENCE [None]
  - HEPATITIS ACUTE [None]
